FAERS Safety Report 16648563 (Version 3)
Quarter: 2019Q4

REPORT INFORMATION
  Report Type: Spontaneous
  Country: US (occurrence: US)
  Receive Date: 20190730
  Receipt Date: 20191031
  Transmission Date: 20200122
  Serious: Yes (Death, Other)
  Sender: FDA-Public Use
  Company Number: US-GLAXOSMITHKLINE-US2019AMR137405

PATIENT
  Age: 62 Year
  Sex: Female
  Weight: 98.4 kg

DRUGS (1)
  1. TRELEGY ELLIPTA [Suspect]
     Active Substance: FLUTICASONE FUROATE\UMECLIDINIUM BROMIDE\VILANTEROL TRIFENATATE
     Indication: CHRONIC OBSTRUCTIVE PULMONARY DISEASE
     Dosage: 100 MCG + 62.5 MCG + 25 MCG
     Route: 055
     Dates: start: 20190718

REACTIONS (7)
  - Blood pressure increased [Fatal]
  - Hypotension [Fatal]
  - Internal haemorrhage [Fatal]
  - Peritoneal haemorrhage [Unknown]
  - Shock [Fatal]
  - Diarrhoea [Unknown]
  - Abdominal pain [Unknown]

NARRATIVE: CASE EVENT DATE: 20190722
